FAERS Safety Report 7407945-9 (Version None)
Quarter: 2011Q2

REPORT INFORMATION
  Report Type: 
  Country: None (occurrence: None)
  Receive Date: 20110412
  Receipt Date: 20110407
  Transmission Date: 20111010
  Serious: No
  Sender: FDA-Public Use
  Company Number: US-PFIZER INC-2011077507

PATIENT
  Sex: Male
  Weight: 102 kg

DRUGS (1)
  1. VIAGRA [Suspect]
     Dosage: UNK
     Dates: end: 20110407

REACTIONS (1)
  - DRUG INEFFECTIVE [None]
